FAERS Safety Report 13751720 (Version 2)
Quarter: 2017Q3

REPORT INFORMATION
  Report Type: Spontaneous
  Country: JP (occurrence: JP)
  Receive Date: 20170713
  Receipt Date: 20170815
  Transmission Date: 20171127
  Serious: Yes (Other)
  Sender: FDA-Public Use
  Company Number: JP-TEVA-785501ISR

PATIENT
  Age: 29 Year
  Sex: Female

DRUGS (6)
  1. ALVESCO [Concomitant]
     Active Substance: CICLESONIDE
     Route: 065
  2. MODIODAL TABLETS 100MG [Suspect]
     Active Substance: MODAFINIL
     Route: 048
  3. CEREKINON [Concomitant]
     Active Substance: TRIMEBUTINE
     Route: 065
  4. LOXONIN [Concomitant]
     Active Substance: LOXOPROFEN SODIUM
     Route: 065
  5. TRAVELMIN [Concomitant]
     Active Substance: DIMENHYDRINATE
     Route: 065
  6. MODIODAL TABLETS 100MG [Suspect]
     Active Substance: MODAFINIL
     Indication: NARCOLEPSY
     Dosage: 100 MILLIGRAM DAILY;
     Route: 048

REACTIONS (4)
  - Dizziness [Unknown]
  - Bronchostenosis [Unknown]
  - Nausea [Unknown]
  - Pruritus [Unknown]
